FAERS Safety Report 20419504 (Version 1)
Quarter: 2022Q1

REPORT INFORMATION
  Report Type: Spontaneous
  Country: US (occurrence: US)
  Receive Date: 20220203
  Receipt Date: 20220203
  Transmission Date: 20220423
  Serious: No
  Sender: FDA-Public Use
  Company Number: US-BRISTOL-MYERS SQUIBB COMPANY-BMS-2022-015720

PATIENT
  Age: 76 Year
  Sex: Male

DRUGS (2)
  1. ORENCIA [Suspect]
     Active Substance: ABATACEPT
     Indication: Illness
     Dosage: 125 MILLIGRAM, QWK
     Route: 058
     Dates: start: 20220104
  2. ORENCIA [Suspect]
     Active Substance: ABATACEPT
     Indication: Illness
     Dosage: 125 MILLIGRAM, QWK
     Route: 058
     Dates: start: 20220104

REACTIONS (2)
  - Joint swelling [Unknown]
  - Arthralgia [Unknown]
